FAERS Safety Report 11870387 (Version 1)
Quarter: 2015Q4

REPORT INFORMATION
  Report Type: Spontaneous
  Country: US (occurrence: None)
  Receive Date: 20151224
  Receipt Date: 20151224
  Transmission Date: 20160305
  Serious: Yes (Other)
  Sender: FDA-Public Use
  Company Number: None

PATIENT
  Age: 63 Year
  Sex: Male

DRUGS (29)
  1. AMITIZA [Concomitant]
     Active Substance: LUBIPROSTONE
  2. PREDNISON [Concomitant]
     Active Substance: PREDNISONE
  3. AMOXICILLIN. [Concomitant]
     Active Substance: AMOXICILLIN
  4. CEPHALEXIN. [Concomitant]
     Active Substance: CEPHALEXIN
  5. TAMSULOSIN [Concomitant]
     Active Substance: TAMSULOSIN
  6. OMITIMA [Concomitant]
  7. WARFARIN [Concomitant]
     Active Substance: WARFARIN
  8. METRONIDAZOLE. [Concomitant]
     Active Substance: METRONIDAZOLE
  9. LYRICA [Concomitant]
     Active Substance: PREGABALIN
  10. ZOHYDRA [Concomitant]
  11. HYDROCODONE/APAP [Concomitant]
     Active Substance: ACETAMINOPHEN\HYDROCODONE BITARTRATE
  12. TESTIM [Concomitant]
     Active Substance: TESTOSTERONE
  13. GABAPENTIN. [Concomitant]
     Active Substance: GABAPENTIN
  14. DIFLUNISAL. [Concomitant]
     Active Substance: DIFLUNISAL
  15. SULFALAZINE [Concomitant]
  16. METOPROLOL [Concomitant]
     Active Substance: METOPROLOL
  17. DIAZEPAM. [Concomitant]
     Active Substance: DIAZEPAM
  18. CRESTOR [Concomitant]
     Active Substance: ROSUVASTATIN CALCIUM
  19. NAPRELAN [Concomitant]
     Active Substance: NAPROXEN SODIUM
  20. OXYCODONE [Concomitant]
     Active Substance: OXYCODONE
  21. METHOTREXATE [Concomitant]
     Active Substance: METHOTREXATE
  22. OPANA [Concomitant]
     Active Substance: OXYMORPHONE HYDROCHLORIDE
  23. AMLODIPINE [Concomitant]
     Active Substance: AMLODIPINE BESYLATE
  24. COREG [Concomitant]
     Active Substance: CARVEDILOL
  25. XELJANZ [Suspect]
     Active Substance: TOFACITINIB CITRATE
     Indication: RHEUMATOID ARTHRITIS
     Route: 048
     Dates: start: 20151011
  26. ENBREL [Concomitant]
     Active Substance: ETANERCEPT
  27. OXYCODONE/APAP [Concomitant]
     Active Substance: ACETAMINOPHEN\OXYCODONE HYDROCHLORIDE
  28. CHLORHEXIDINE [Concomitant]
     Active Substance: CHLORHEXIDINE
  29. AZITHROMYCIN [Concomitant]
     Active Substance: AZITHROMYCIN ANHYDROUS

REACTIONS (1)
  - Condition aggravated [None]

NARRATIVE: CASE EVENT DATE: 201512
